FAERS Safety Report 9076189 (Version 1)
Quarter: 2013Q1

REPORT INFORMATION
  Report Type: Report from Study
  Country: US (occurrence: US)
  Receive Date: 20130129
  Receipt Date: 20130129
  Transmission Date: 20140127
  Serious: No
  Sender: FDA-Public Use
  Company Number: US-ABBOTT-12P-163-0933407-00

PATIENT
  Age: 69 Year
  Sex: Male

DRUGS (7)
  1. HUMIRA 40 MG/0.8 ML PEN [Suspect]
     Indication: CROHN^S DISEASE
     Dosage: LOADING DOSE
     Route: 058
     Dates: start: 20120502
  2. HUMIRA 40 MG/0.8 ML PEN [Suspect]
     Dosage: 80 MG LOADING DOSE
     Dates: start: 20120516
  3. HUMIRA 40 MG/0.8 ML PEN [Suspect]
  4. COZAAR [Concomitant]
     Indication: HYPERTENSION
  5. CRESTOR [Concomitant]
     Indication: HYPERLIPIDAEMIA
  6. BUDESONIDE [Concomitant]
     Indication: PRODUCT USED FOR UNKNOWN INDICATION
  7. OMEPRAZOLE [Concomitant]
     Indication: PROPHYLAXIS AGAINST GASTROINTESTINAL ULCER

REACTIONS (4)
  - Blood glucose increased [Not Recovered/Not Resolved]
  - Injection site pain [Recovered/Resolved]
  - Injection site pain [Recovered/Resolved]
  - Blood pressure increased [Unknown]
